FAERS Safety Report 22524530 (Version 1)
Quarter: 2023Q2

REPORT INFORMATION
  Report Type: Spontaneous
  Country: KR (occurrence: KR)
  Receive Date: 20230606
  Receipt Date: 20230606
  Transmission Date: 20230721
  Serious: Yes (Hospitalization, Other)
  Sender: FDA-Public Use
  Company Number: KR-ORGANON-O2305KOR003068

PATIENT
  Age: 85 Year
  Sex: Male

DRUGS (7)
  1. COZAAR [Suspect]
     Active Substance: LOSARTAN POTASSIUM
     Dosage: DOSAGE FORM: FILM-COATED TABLET
     Route: 048
  2. FINASTERIDE [Concomitant]
     Active Substance: FINASTERIDE
     Dosage: UNK
     Route: 048
  3. DIGOXIN [Concomitant]
     Active Substance: DIGOXIN
     Dosage: UNK
  4. LANSOPRAZOLE [Concomitant]
     Active Substance: LANSOPRAZOLE
     Dosage: GRANULES
     Route: 048
  5. SPIRONOLACTONE [Concomitant]
     Active Substance: SPIRONOLACTONE
     Dosage: UNK
     Route: 048
  6. TORSEMIDE [Concomitant]
     Active Substance: TORSEMIDE
     Dosage: DOSAGE FORM: UNCOATED TABLET
     Route: 048
     Dates: end: 20171023
  7. TAMSULOSIN HYDROCHLORIDE [Concomitant]
     Active Substance: TAMSULOSIN HYDROCHLORIDE
     Dosage: DOSAGE FORM: SLOW-RELEASE FILM-COATED TABLET
     Route: 048

REACTIONS (4)
  - Dyspnoea [Recovered/Resolved]
  - Bradycardia [Not Recovered/Not Resolved]
  - Pulmonary oedema [Recovered/Resolved]
  - Metastases to lung [Not Recovered/Not Resolved]

NARRATIVE: CASE EVENT DATE: 20171020
